FAERS Safety Report 8617113-0 (Version None)
Quarter: 2012Q3

REPORT INFORMATION
  Report Type: 
  Country: None (occurrence: None)
  Receive Date: 20120823
  Receipt Date: 20120810
  Transmission Date: 20120928
  Serious: No
  Sender: FDA-Public Use
  Company Number: US-ASTRAZENECA-2010SE22014

PATIENT
  Age: 61 Year
  Sex: Female

DRUGS (2)
  1. SYMBICORT [Suspect]
     Dosage: 160/4.5 MCG, 2 PUFFS BY MOUTH TWO TIMES PER DAY
     Route: 055
  2. SYMBICORT [Suspect]
     Dosage: THREE PUFFS TWICE DAILY
     Route: 055

REACTIONS (4)
  - DYSPNOEA [None]
  - INTENTIONAL DRUG MISUSE [None]
  - OFF LABEL USE [None]
  - ASTHMA [None]
